FAERS Safety Report 15487643 (Version 10)
Quarter: 2020Q4

REPORT INFORMATION
  Report Type: Spontaneous
  Country: JP (occurrence: JP)
  Receive Date: 20181011
  Receipt Date: 20201106
  Transmission Date: 20210113
  Serious: Yes (Hospitalization, Other)
  Sender: FDA-Public Use
  Company Number: JP-LUNDBECK-DKLU2054678

PATIENT
  Age: 4 Year
  Sex: Male
  Weight: 15 kg

DRUGS (26)
  1. SABRIL [Suspect]
     Active Substance: VIGABATRIN
     Dosage: 1300 MG/DAY, BID
     Route: 048
     Dates: start: 20180705, end: 20180803
  2. SABRIL [Suspect]
     Active Substance: VIGABATRIN
     Route: 048
     Dates: start: 20190201, end: 20200105
  3. SABRIL [Suspect]
     Active Substance: VIGABATRIN
     Dosage: 750 MG/DAY, BID
     Route: 048
     Dates: start: 20200106, end: 20200202
  4. VIMPAT [Concomitant]
     Active Substance: LACOSAMIDE
     Indication: INFANTILE SPASMS
     Route: 065
     Dates: end: 20180805
  5. PRANLUKAST [Concomitant]
     Active Substance: PRANLUKAST
     Indication: ASTHMA
     Route: 065
  6. ONON [Concomitant]
     Active Substance: PRANLUKAST
     Indication: PRODUCT USED FOR UNKNOWN INDICATION
     Route: 065
  7. VIGABATRIN. [Concomitant]
     Active Substance: VIGABATRIN
     Indication: INFANTILE SPASMS
     Route: 065
  8. PHENOBARBITAL. [Concomitant]
     Active Substance: PHENOBARBITAL
     Indication: PRODUCT USED FOR UNKNOWN INDICATION
     Route: 065
  9. GASMOTIN [Concomitant]
     Active Substance: MOSAPRIDE CITRATE
     Indication: PRODUCT USED FOR UNKNOWN INDICATION
     Route: 065
  10. SABRIL [Suspect]
     Active Substance: VIGABATRIN
     Indication: INFANTILE SPASMS
     Dosage: 2100 MG/DAY, BID
     Route: 048
     Dates: start: 20180804, end: 20180904
  11. DEPAKENE [Concomitant]
     Active Substance: VALPROIC ACID
     Indication: INFANTILE SPASMS
     Route: 065
     Dates: end: 20190707
  12. E KEPPRA [Concomitant]
     Active Substance: LEVETIRACETAM
     Indication: INFANTILE SPASMS
     Route: 065
  13. HERBAL NOS [Concomitant]
     Active Substance: HERBALS
     Indication: GASTROINTESTINAL MOTILITY DISORDER
     Route: 065
     Dates: start: 20190424
  14. SABRIL [Suspect]
     Active Substance: VIGABATRIN
     Dosage: 1300 MG/DAY, BID
     Route: 048
     Dates: start: 20180905, end: 20190131
  15. SABRIL [Suspect]
     Active Substance: VIGABATRIN
     Dosage: 750 MG/DAY, BID
     Route: 048
     Dates: start: 20200511
  16. LEVETIRACETAM. [Concomitant]
     Active Substance: LEVETIRACETAM
     Indication: PRODUCT USED FOR UNKNOWN INDICATION
     Route: 065
  17. L CARTIN [Concomitant]
     Active Substance: LEVOCARNITINE HYDROCHLORIDE
     Indication: INFANTILE SPASMS
     Route: 065
  18. VALPROATE NA [Concomitant]
     Active Substance: VALPROATE SODIUM
     Indication: PRODUCT USED FOR UNKNOWN INDICATION
     Route: 065
  19. PULMICORT TURBUHALER [Concomitant]
     Active Substance: BUDESONIDE
     Indication: GASTROINTESTINAL MOTILITY DISORDER
     Route: 065
  20. SABRIL [Suspect]
     Active Substance: VIGABATRIN
     Dosage: 650 MG/DAY, BID
     Route: 048
     Dates: start: 20180618, end: 20180704
  21. PHENOBAL [Concomitant]
     Active Substance: PHENOBARBITAL
     Indication: INFANTILE SPASMS
     Route: 065
  22. URALYT [POTASSIUM CITRATE;SODIUM CITRATE] [Concomitant]
     Active Substance: POTASSIUM CITRATE\SODIUM CITRATE
     Indication: GASTROINTESTINAL MOTILITY DISORDER
     Route: 065
     Dates: start: 20190410
  23. ROZEREM [Concomitant]
     Active Substance: RAMELTEON
     Indication: INFANTILE SPASMS
     Route: 065
  24. MOVICOL [Concomitant]
     Active Substance: POLYETHYLENE GLYCOL 3350\POTASSIUM CHLORIDE\SODIUM BICARBONATE\SODIUM CHLORIDE
     Indication: GASTROINTESTINAL MOTILITY DISORDER
     Route: 065
  25. SABRIL [Suspect]
     Active Substance: VIGABATRIN
     Route: 048
     Dates: start: 20190426, end: 20190611
  26. SABRIL [Suspect]
     Active Substance: VIGABATRIN
     Dosage: 750 MG/DAY, BID
     Route: 048
     Dates: start: 20200203, end: 20200510

REACTIONS (7)
  - Upper respiratory tract inflammation [Recovering/Resolving]
  - Asthma [Recovering/Resolving]
  - Oral discharge [Recovering/Resolving]
  - Pneumonia [Recovering/Resolving]
  - Dyspepsia [Recovering/Resolving]
  - Constipation [Recovering/Resolving]
  - Asthma [Recovering/Resolving]

NARRATIVE: CASE EVENT DATE: 20180804
